FAERS Safety Report 9463847 (Version 2)
Quarter: 2013Q3

REPORT INFORMATION
  Report Type: Spontaneous
  Country: US (occurrence: US)
  Receive Date: 20130819
  Receipt Date: 20130925
  Transmission Date: 20140515
  Serious: Yes (Other)
  Sender: FDA-Public Use
  Company Number: US-PFIZER INC-2013238316

PATIENT
  Age: 55 Year
  Sex: Female
  Weight: 97.51 kg

DRUGS (6)
  1. PRISTIQ [Suspect]
     Indication: DEPRESSION
     Dosage: 50 MG, 1X/DAY
     Route: 048
  2. KLONOPIN [Concomitant]
     Indication: ANXIETY
     Dosage: UNK
  3. TRAMADOL [Concomitant]
     Dosage: UNK
  4. WARFARIN [Concomitant]
     Dosage: UNK
  5. POTASSIUM [Concomitant]
     Dosage: UNK
  6. FUROSEMIDE [Concomitant]
     Dosage: UNK

REACTIONS (1)
  - Cardiac disorder [Unknown]
